FAERS Safety Report 4423247-7 (Version None)
Quarter: 2004Q3

REPORT INFORMATION
  Report Type: 
  Country: None (occurrence: None)
  Receive Date: 20040805
  Receipt Date: 20040727
  Transmission Date: 20050211
  Serious: Yes (Death)
  Sender: FDA-Public Use
  Company Number: 2004225836US

PATIENT
  Age: 76 Year
  Sex: Female

DRUGS (4)
  1. CYCLOPHOSPHAMIDE [Suspect]
     Indication: NON-HODGKIN'S LYMPHOMA
     Dosage: CYCLE 2
  2. DOXORUBICIN PFS(DOXORUBICIN HYDROCHLORIDE) SOLUTION, STERILE [Suspect]
     Indication: NON-HODGKIN'S LYMPHOMA
     Dosage: CYCLE 2
  3. VINCRISTINE [Suspect]
     Indication: NON-HODGKIN'S LYMPHOMA
     Dosage: CYCLE 2
  4. DELTASONE [Suspect]
     Indication: NON-HODGKIN'S LYMPHOMA
     Dosage: CYCLE 2

REACTIONS (13)
  - ATELECTASIS [None]
  - ATRIAL FLUTTER [None]
  - ATRIOVENTRICULAR BLOCK [None]
  - CARDIAC DISORDER [None]
  - CARDIOMEGALY [None]
  - DIZZINESS [None]
  - FEBRILE NEUTROPENIA [None]
  - HYPERHIDROSIS [None]
  - INTRACARDIAC THROMBUS [None]
  - MASS [None]
  - PLEURAL EFFUSION [None]
  - PULMONARY HYPERTENSION [None]
  - SEPSIS [None]
